FAERS Safety Report 7334906-0 (Version None)
Quarter: 2011Q1

REPORT INFORMATION
  Report Type: 
  Country: None (occurrence: None)
  Receive Date: 20110307
  Receipt Date: 20110225
  Transmission Date: 20110831
  Serious: Yes (Hospitalization)
  Sender: FDA-Public Use
  Company Number: US-ROCHE-731046

PATIENT
  Sex: Female
  Weight: 54.4 kg

DRUGS (6)
  1. ACTEMRA [Suspect]
     Route: 042
     Dates: start: 20110224
  2. ACTEMRA [Suspect]
     Route: 042
     Dates: start: 20100706
  3. ACTEMRA [Suspect]
     Dosage: FORM: INFUSION
     Route: 042
  4. ACTEMRA [Suspect]
     Route: 042
     Dates: start: 20100804
  5. ACTEMRA [Suspect]
     Route: 042
     Dates: start: 20100607
  6. ACTEMRA [Suspect]
     Route: 042
     Dates: start: 20100901, end: 20101201

REACTIONS (6)
  - NASOPHARYNGITIS [None]
  - RHEUMATOID ARTHRITIS [None]
  - HYPERTENSION [None]
  - DIZZINESS [None]
  - PNEUMONIA [None]
  - MALAISE [None]
